FAERS Safety Report 9902109 (Version 1)
Quarter: 2014Q1

REPORT INFORMATION
  Report Type: Spontaneous
  Country: US (occurrence: US)
  Receive Date: 20140217
  Receipt Date: 20140217
  Transmission Date: 20141002
  Serious: Yes (Other)
  Sender: FDA-Public Use
  Company Number: PHEH2014US002647

PATIENT
  Sex: Female

DRUGS (2)
  1. DIOVAN HCT [Suspect]
     Dosage: 1 DF (160 MG VALS/ 25 MG HYDR), DAILY
  2. HYDROCODONE [Suspect]
     Dosage: UNK UKN, UNK

REACTIONS (4)
  - Pneumonia [Unknown]
  - Cardiomegaly [Unknown]
  - Stress [Unknown]
  - Fatigue [Unknown]
